FAERS Safety Report 9139621 (Version 1)
Quarter: 2013Q1

REPORT INFORMATION
  Report Type: Spontaneous
  Country: FR (occurrence: FR)
  Receive Date: 20130305
  Receipt Date: 20130305
  Transmission Date: 20140127
  Serious: Yes (Death, Life-Threatening)
  Sender: FDA-Public Use
  Company Number: FR-JNJFOC-20130214831

PATIENT
  Age: 80 Year
  Sex: Female

DRUGS (2)
  1. ZALDIAR [Suspect]
     Indication: ARTHRALGIA
     Route: 048
     Dates: start: 20130119, end: 20130121
  2. PREVISCAN (FLUINDIONE) [Interacting]
     Indication: ATRIAL FIBRILLATION
     Route: 048
     Dates: start: 2000, end: 20130128

REACTIONS (6)
  - International normalised ratio increased [Fatal]
  - Gastrointestinal haemorrhage [Fatal]
  - Anaemia [Fatal]
  - Hallucination [Unknown]
  - Drug interaction [Unknown]
  - Somnolence [Unknown]
